FAERS Safety Report 5324706-5 (Version None)
Quarter: 2007Q2

REPORT INFORMATION
  Report Type: 
  Country: None (occurrence: None)
  Receive Date: 20070509
  Receipt Date: 20070425
  Transmission Date: 20071010
  Serious: Yes (Hospitalization)
  Sender: FDA-Public Use
  Company Number: 310001L07JPN

PATIENT
  Age: 32 Year
  Sex: Female

DRUGS (2)
  1. FOLLITROPIN ALPHA (FOLLITROPIN ALFA) [Suspect]
     Indication: ASSISTED FERTILISATION
  2. CHORIONIC GONADOTROPIN [Suspect]

REACTIONS (7)
  - ASCITES [None]
  - DYSPNOEA [None]
  - HAEMATOCRIT INCREASED [None]
  - HYPOVOLAEMIC SHOCK [None]
  - OVARIAN ENLARGEMENT [None]
  - OVARIAN HYPERSTIMULATION SYNDROME [None]
  - PLEURAL EFFUSION [None]
